FAERS Safety Report 7936148-4 (Version None)
Quarter: 2011Q4

REPORT INFORMATION
  Report Type: 
  Country: None (occurrence: None)
  Receive Date: 20111121
  Receipt Date: 20111108
  Transmission Date: 20120403
  Serious: Yes (Other)
  Sender: FDA-Public Use
  Company Number: 2011MA016246

PATIENT
  Age: 26 Year
  Sex: Female

DRUGS (1)
  1. RIFAMPIN [Suspect]
     Indication: TUBERCULOUS PLEURISY

REACTIONS (2)
  - PERITONEAL TUBERCULOSIS [None]
  - PARADOXICAL DRUG REACTION [None]
